FAERS Safety Report 19389069 (Version 1)
Quarter: 2021Q2

REPORT INFORMATION
  Report Type: Spontaneous
  Country: AR (occurrence: AR)
  Receive Date: 20210607
  Receipt Date: 20210607
  Transmission Date: 20210717
  Serious: Yes (Other)
  Sender: FDA-Public Use
  Company Number: AR-AMGEN-ARGSP2021087120

PATIENT
  Age: 53 Year
  Sex: Female

DRUGS (4)
  1. ENBREL [Suspect]
     Active Substance: ETANERCEPT
     Dosage: 50 MG, EVERY 10 DAYS
     Route: 065
     Dates: start: 202103
  2. COVID?19 VACCINE [Concomitant]
     Dosage: 2ND DOSE, SINGLE
     Route: 030
     Dates: start: 20210512, end: 20210512
  3. ENBREL [Suspect]
     Active Substance: ETANERCEPT
     Indication: RHEUMATOID ARTHRITIS
     Dosage: 50 MG, WEEKLY
     Route: 065
     Dates: start: 20180104
  4. COVID?19 VACCINE [Concomitant]
     Dosage: 1ST DOSE, SINGLE
     Route: 030
     Dates: start: 20210315, end: 20210315

REACTIONS (5)
  - Epilepsy [Unknown]
  - Hypothyroidism [Unknown]
  - Inflammation [Unknown]
  - Intentional product misuse [Unknown]
  - Urinary tract infection [Unknown]

NARRATIVE: CASE EVENT DATE: 202103
